FAERS Safety Report 24874332 (Version 1)
Quarter: 2025Q1

REPORT INFORMATION
  Report Type: Spontaneous
  Country: US (occurrence: US)
  Receive Date: 20250122
  Receipt Date: 20250122
  Transmission Date: 20250408
  Serious: No
  Sender: PFIZER
  Company Number: US-PFIZER INC-202500015219

PATIENT
  Sex: Male

DRUGS (2)
  1. BRAFTOVI [Suspect]
     Active Substance: ENCORAFENIB
     Indication: Non-small cell lung cancer
     Dates: start: 202410
  2. MEKTOVI [Suspect]
     Active Substance: BINIMETINIB
     Indication: Non-small cell lung cancer
     Dates: start: 202410

REACTIONS (1)
  - Pyrexia [Unknown]
